FAERS Safety Report 22380710 (Version 1)
Quarter: 2023Q2

REPORT INFORMATION
  Report Type: Spontaneous
  Country: CN (occurrence: None)
  Receive Date: 20230529
  Receipt Date: 20230529
  Transmission Date: 20230721
  Serious: Yes (Other)
  Sender: FDA-Public Use
  Company Number: CN-ROCHE-3356555

PATIENT
  Age: 49 Year
  Sex: Female
  Weight: 51.1 kg

DRUGS (3)
  1. HERCEPTIN [Suspect]
     Active Substance: TRASTUZUMAB
     Indication: Breast mass
     Dosage: TH REGIMEN, 8 MG/KG FOR THE FIRST DOSE, FOLLOWED BY 6 MG/KG EACH TIME
     Route: 041
     Dates: start: 20230412, end: 20230420
  2. DOCETAXEL [Suspect]
     Active Substance: DOCETAXEL
     Indication: Breast mass
     Dosage: TH REGIMEN, 75MG/M2
     Route: 041
     Dates: start: 20230412, end: 20230420
  3. SODIUM CHLORIDE [Concomitant]
     Active Substance: SODIUM CHLORIDE
     Route: 041
     Dates: start: 20230412, end: 20230420

REACTIONS (1)
  - Myelosuppression [Unknown]

NARRATIVE: CASE EVENT DATE: 20230420
